FAERS Safety Report 19737731 (Version 1)
Quarter: 2021Q3

REPORT INFORMATION
  Report Type: Spontaneous
  Country: IL (occurrence: IL)
  Receive Date: 20210823
  Receipt Date: 20210823
  Transmission Date: 20211014
  Serious: Yes (Other)
  Sender: FDA-Public Use
  Company Number: IL-ALLERGAN-2128893US

PATIENT
  Sex: Female

DRUGS (4)
  1. OZURDEX [Suspect]
     Active Substance: DEXAMETHASONE
     Indication: EYE OEDEMA
     Dosage: 0.7 MG, SINGLE
     Route: 031
     Dates: start: 202102, end: 202102
  2. HUMIRA [Suspect]
     Active Substance: ADALIMUMAB
     Indication: UVEITIS
     Dosage: 40 MG, Q WEEK
     Route: 058
     Dates: start: 202107
  3. METHOTREXATE. [Concomitant]
     Active Substance: METHOTREXATE
     Dosage: 1 DF, QWEEK (4 PILLS)
  4. HUMIRA [Suspect]
     Active Substance: ADALIMUMAB
     Dosage: 40 MG
     Route: 058
     Dates: start: 20191121, end: 202107

REACTIONS (5)
  - Vascular occlusion [Not Recovered/Not Resolved]
  - Drug ineffective [Unknown]
  - Retinal oedema [Not Recovered/Not Resolved]
  - Eye injury [Not Recovered/Not Resolved]
  - Condition aggravated [Not Recovered/Not Resolved]
